FAERS Safety Report 11078001 (Version 2)
Quarter: 2015Q2

REPORT INFORMATION
  Report Type: Spontaneous
  Country: JP (occurrence: JP)
  Receive Date: 20150430
  Receipt Date: 20150509
  Transmission Date: 20150821
  Serious: Yes (Other)
  Sender: FDA-Public Use
  Company Number: JP-JNJFOC-20150412882

PATIENT
  Age: 37 Year
  Sex: Male

DRUGS (1)
  1. LISTERINE NATURALS ANTISEPTIC - HERBAL MINT [Suspect]
     Active Substance: EUCALYPTOL\MENTHOL\METHYL SALICYLATE\THYMOL
     Indication: DENTAL DISORDER PROPHYLAXIS
     Route: 048
     Dates: start: 20150412, end: 20150415

REACTIONS (2)
  - Parotitis [Recovered/Resolved]
  - Oral mucosal exfoliation [Recovered/Resolved]

NARRATIVE: CASE EVENT DATE: 20150415
